FAERS Safety Report 8365890-9 (Version None)
Quarter: 2012Q2

REPORT INFORMATION
  Report Type: 
  Country: None (occurrence: None)
  Receive Date: 20120515
  Receipt Date: 20120515
  Transmission Date: 20120825
  Serious: Yes (Other)
  Sender: FDA-Public Use
  Company Number: None

PATIENT
  Age: 40 Year
  Sex: Female

DRUGS (1)
  1. ENBREL [Suspect]
     Dosage: 50MG QWEEK SQ
     Route: 058
     Dates: start: 20120410, end: 20120509

REACTIONS (5)
  - HYPERSENSITIVITY [None]
  - SWOLLEN TONGUE [None]
  - HYPOAESTHESIA [None]
  - WHEEZING [None]
  - LOCAL SWELLING [None]
